FAERS Safety Report 4701218-0 (Version None)
Quarter: 2005Q2

REPORT INFORMATION
  Report Type: 
  Country: None (occurrence: None)
  Receive Date: 20050627
  Receipt Date: 20050627
  Transmission Date: 20051028
  Serious: Yes (Hospitalization)
  Sender: FDA-Public Use
  Company Number: None

PATIENT
  Age: 67 Year
  Sex: Male
  Weight: 82.1011 kg

DRUGS (2)
  1. SILDENAFIL [Suspect]
     Indication: CARDIAC FAILURE CONGESTIVE
     Dosage: 75 MG PO TID
     Route: 048
     Dates: start: 20040917, end: 20050613
  2. SILDENAFIL [Suspect]
     Indication: PULMONARY HYPERTENSION
     Dosage: 75 MG PO TID
     Route: 048
     Dates: start: 20040917, end: 20050613

REACTIONS (1)
  - ISCHAEMIC CARDIOMYOPATHY [None]
